FAERS Safety Report 5793536-2 (Version None)
Quarter: 2008Q2

REPORT INFORMATION
  Report Type: 
  Country: None (occurrence: None)
  Receive Date: 20080627
  Receipt Date: 20080616
  Transmission Date: 20081010
  Serious: Yes (Hospitalization)
  Sender: FDA-Public Use
  Company Number: PHHY2008DE11326

PATIENT
  Sex: Male
  Weight: 98 kg

DRUGS (7)
  1. ZOMETA [Suspect]
     Indication: METASTASES TO BONE
     Dosage: 4 MG, UNK
     Route: 042
     Dates: start: 20071101, end: 20080501
  2. SUTENT [Concomitant]
     Dosage: 50 MCI, UNK
     Dates: start: 20071101, end: 20080101
  3. AMARYL [Concomitant]
     Indication: DIABETES MELLITUS
     Dosage: 2 MG, UNK
  4. TRANSTEC [Concomitant]
     Dosage: UNK
  5. NEXIUM [Concomitant]
     Dosage: 40 MG, UNK
  6. GABAPENTIN [Concomitant]
     Indication: NEURALGIA
     Dosage: 900 MG, UNK
  7. CALCILAC KT [Concomitant]
     Dosage: UNK

REACTIONS (4)
  - OSTEONECROSIS [None]
  - RIB FRACTURE [None]
  - SOFT TISSUE NECROSIS [None]
  - THORACOTOMY [None]
